FAERS Safety Report 6734419-0 (Version None)
Quarter: 2010Q2

REPORT INFORMATION
  Report Type: 
  Country: None (occurrence: None)
  Receive Date: 20100513
  Receipt Date: 20100205
  Transmission Date: 20101027
  Serious: Yes (Other)
  Sender: FDA-Public Use
  Company Number: 2010S1000069

PATIENT
  Age: 55 Year
  Sex: Male
  Weight: 88.6 kg

DRUGS (25)
  1. CUBICIN [Suspect]
     Indication: ABSCESS
     Dosage: 6 MG/KG;Q24H;IV
     Route: 042
     Dates: start: 20100203, end: 20100203
  2. CUBICIN [Suspect]
     Indication: CELLULITIS
     Dosage: 6 MG/KG;Q24H;IV
     Route: 042
     Dates: start: 20100203, end: 20100203
  3. AUGMENTIN '125' [Concomitant]
  4. FLONASE [Concomitant]
  5. MONTELUKAST SODIUM [Concomitant]
  6. TRIAMCINOLONE [Concomitant]
  7. ACETONIDE [Concomitant]
  8. ADVAIR DISKUS 100/50 [Concomitant]
  9. THEOPHYLLINE [Concomitant]
  10. LORAZEPAM [Concomitant]
  11. ALBUTEROL SULFATE [Concomitant]
  12. SERTRALINE HCL [Concomitant]
  13. PROPECIA [Concomitant]
  14. ZOLPIDEM [Concomitant]
  15. BACLOFEN [Concomitant]
  16. NEXIUM [Concomitant]
  17. HYDROCHLOROTHIAZIDE [Concomitant]
  18. VENTOLIN [Concomitant]
  19. MELOXICAM [Concomitant]
  20. PILOCARPINE HYDROCHLORIDE [Concomitant]
  21. BONIVA [Concomitant]
  22. AZITHROMYCIN [Concomitant]
  23. PREDNISONE TAB [Concomitant]
  24. LISINOPRIL [Concomitant]
  25. AMOXICILLIN AND CLAVULANATE POTASSIUM [Concomitant]

REACTIONS (1)
  - ANAPHYLACTIC REACTION [None]
